FAERS Safety Report 14014191 (Version 2)
Quarter: 2017Q4

REPORT INFORMATION
  Report Type: Report from Study
  Country: None (occurrence: AR)
  Receive Date: 20170927
  Receipt Date: 20171120
  Transmission Date: 20180321
  Serious: Yes (Hospitalization, Congenital Anomaly, Other)
  Sender: FDA-Public Use
  Company Number: AR-ABBVIE-17K-007-2112879-00

PATIENT
  Age: 59 Year
  Sex: Female

DRUGS (1)
  1. HUMIRA [Suspect]
     Active Substance: ADALIMUMAB
     Indication: RHEUMATOID ARTHRITIS
     Route: 058
     Dates: start: 20110901, end: 201709

REACTIONS (3)
  - Colon cancer [Recovered/Resolved]
  - Lung cyst [Unknown]
  - Gallbladder perforation [Unknown]

NARRATIVE: CASE EVENT DATE: 20170912
